FAERS Safety Report 12000676 (Version 10)
Quarter: 2017Q2

REPORT INFORMATION
  Report Type: Spontaneous
  Country: US (occurrence: US)
  Receive Date: 20160204
  Receipt Date: 20170505
  Transmission Date: 20170829
  Serious: Yes (Other)
  Sender: FDA-Public Use
  Company Number: US-PFIZER INC-2016057643

PATIENT
  Age: 52 Year
  Sex: Female
  Weight: 71.2 kg

DRUGS (5)
  1. IBRANCE [Suspect]
     Active Substance: PALBOCICLIB
     Indication: BREAST CANCER METASTATIC
     Dosage: 125 MG, CYCLIC (DAY 1-21 PER 28 DAYS)
     Route: 048
     Dates: start: 20160116
  2. IBRANCE [Suspect]
     Active Substance: PALBOCICLIB
     Indication: BREAST CANCER
     Dosage: UNK
  3. IBRANCE [Suspect]
     Active Substance: PALBOCICLIB
     Dosage: 125 MG, CYCLIC (DAYS 1-21 Q 28 DAYS)
     Route: 048
  4. IBRANCE [Suspect]
     Active Substance: PALBOCICLIB
     Dosage: 125 MG, CYCLIC (DAYS 1-21 Q 28 DAYS)
     Route: 048
     Dates: start: 20160116
  5. IBRANCE [Suspect]
     Active Substance: PALBOCICLIB
     Dosage: 125 MG, CYCLIC (D1-D21 Q28 D)
     Route: 048
     Dates: start: 20160116

REACTIONS (20)
  - Contusion [Unknown]
  - Tongue disorder [Unknown]
  - Insomnia [Unknown]
  - Somnolence [Unknown]
  - Musculoskeletal stiffness [Not Recovered/Not Resolved]
  - Pain [Unknown]
  - Gait disturbance [Not Recovered/Not Resolved]
  - Head injury [Unknown]
  - Loss of consciousness [Unknown]
  - Night sweats [Unknown]
  - Neoplasm progression [Unknown]
  - Back pain [Unknown]
  - Lip pain [Unknown]
  - Blood pressure increased [Unknown]
  - Bone pain [Unknown]
  - Fall [Unknown]
  - Pain in extremity [Unknown]
  - Cough [Unknown]
  - Sneezing [Unknown]
  - Weight increased [Unknown]

NARRATIVE: CASE EVENT DATE: 20160813
